FAERS Safety Report 8591306 (Version 8)
Quarter: 2014Q3

REPORT INFORMATION
  Report Type: Report from Study
  Country: MX (occurrence: MX)
  Receive Date: 20120601
  Receipt Date: 20140812
  Transmission Date: 20150326
  Serious: Yes (Hospitalization, Other)
  Sender: FDA-Public Use
  Company Number: PHHY2012MX046300

PATIENT
  Age: 80 Year
  Sex: Female

DRUGS (11)
  1. SOTOPER [Concomitant]
     Dosage: 160 MG DAILY
  2. INHIBITRON [Concomitant]
     Indication: GASTRITIS
     Dosage: 20 MG, DAILY
  3. URO-VAXOM [Concomitant]
     Dosage: 1 DF, FOR 4 MONTHS
     Route: 065
  4. TENORETIC [Concomitant]
     Active Substance: ATENOLOL\CHLORTHALIDONE
     Indication: HYPERTENSION
     Dosage: UNK UKN, QD
  5. VITAMIN C [Concomitant]
     Active Substance: ASCORBIC ACID
     Dosage: 160 MG, DAILY
  6. SOTOPER [Concomitant]
     Dosage: 2 DF DAILY
  7. ANAPSIQUE [Concomitant]
     Dosage: UNK UKN, UNK
  8. MODURETIC 5-50 [Concomitant]
     Active Substance: AMILORIDE HYDROCHLORIDE\HYDROCHLOROTHIAZIDE
     Indication: DIURETIC THERAPY
     Dosage: 50 MG, DAILY
  9. DIOVAN [Suspect]
     Active Substance: VALSARTAN
     Indication: HYPERTENSION
     Dosage: 320MG, (ONE TABLET IN THE MORNING) AND 160MG (ONE TABLET IN THE EVENING)
     Route: 048
     Dates: end: 201310
  10. DIOVAN [Suspect]
     Active Substance: VALSARTAN
     Dosage: 320 MG BID (IN THE MORNINGS AND IN THE EVENINGS) DAILY
     Route: 048
     Dates: start: 201310
  11. URO-VAXOM [Concomitant]
     Indication: CYSTITIS
     Dosage: UNK UKN, UNK

REACTIONS (28)
  - Ligament rupture [Not Recovered/Not Resolved]
  - Ligament sprain [Not Recovered/Not Resolved]
  - Swelling face [Not Recovered/Not Resolved]
  - Urinary tract infection [Not Recovered/Not Resolved]
  - Cystitis [Not Recovered/Not Resolved]
  - Dysphonia [Not Recovered/Not Resolved]
  - Thyroid adenoma [Unknown]
  - Fall [Not Recovered/Not Resolved]
  - Benign breast neoplasm [Not Recovered/Not Resolved]
  - Blood pressure fluctuation [Not Recovered/Not Resolved]
  - Urticaria [Not Recovered/Not Resolved]
  - Disease susceptibility [Not Recovered/Not Resolved]
  - Drug intolerance [Not Recovered/Not Resolved]
  - Localised oedema [Not Recovered/Not Resolved]
  - Feeling abnormal [Unknown]
  - Tachycardia [Not Recovered/Not Resolved]
  - Chronic gastritis [Not Recovered/Not Resolved]
  - Abdominal discomfort [Unknown]
  - Hearing impaired [Not Recovered/Not Resolved]
  - Lower limb fracture [Not Recovered/Not Resolved]
  - Skin exfoliation [Not Recovered/Not Resolved]
  - Arrhythmia [Not Recovered/Not Resolved]
  - Tinnitus [Not Recovered/Not Resolved]
  - Blood pressure increased [Unknown]
  - Haemoglobin decreased [Not Recovered/Not Resolved]
  - Limb injury [Not Recovered/Not Resolved]
  - Rash pruritic [Not Recovered/Not Resolved]
  - Head discomfort [Not Recovered/Not Resolved]

NARRATIVE: CASE EVENT DATE: 2008
